FAERS Safety Report 20032018 (Version 1)
Quarter: 2021Q4

REPORT INFORMATION
  Report Type: Spontaneous
  Country: US (occurrence: US)
  Receive Date: 20211103
  Receipt Date: 20211103
  Transmission Date: 20220303
  Serious: No
  Sender: FDA-Public Use
  Company Number: US-ALLERGAN-2110078US

PATIENT
  Age: 63 Year
  Sex: Male

DRUGS (5)
  1. VRAYLAR [Interacting]
     Active Substance: CARIPRAZINE
     Indication: Bipolar disorder
     Dosage: 1.5 MG, QD
     Route: 048
     Dates: start: 2020
  2. VRAYLAR [Interacting]
     Active Substance: CARIPRAZINE
     Indication: Mania
  3. VRAYLAR [Interacting]
     Active Substance: CARIPRAZINE
     Indication: Mania
  4. TEGRETOL [Suspect]
     Active Substance: CARBAMAZEPINE
     Indication: Product used for unknown indication
  5. LITHIUM [Concomitant]
     Active Substance: LITHIUM
     Indication: Product used for unknown indication
     Dosage: UNK
     Dates: start: 1976

REACTIONS (3)
  - Akathisia [Recovering/Resolving]
  - Tremor [Recovering/Resolving]
  - Drug interaction [Recovered/Resolved]

NARRATIVE: CASE EVENT DATE: 20200101
